FAERS Safety Report 5837245-X (Version None)
Quarter: 2008Q3

REPORT INFORMATION
  Report Type: 
  Country: None (occurrence: None)
  Receive Date: 20080807
  Receipt Date: 20080731
  Transmission Date: 20090109
  Serious: Yes (Death, Other)
  Sender: FDA-Public Use
  Company Number: US-BAYER-200829840NA

PATIENT
  Sex: Male

DRUGS (15)
  1. MAGNEVIST [Suspect]
     Indication: NUCLEAR MAGNETIC RESONANCE IMAGING
     Dates: start: 20021119, end: 20021119
  2. MAGNEVIST [Suspect]
     Dates: start: 20031004, end: 20031004
  3. MAGNEVIST [Suspect]
     Dates: start: 20031208, end: 20031208
  4. MAGNEVIST [Suspect]
     Dates: start: 20040116, end: 20040116
  5. MAGNEVIST [Suspect]
     Dates: start: 20040305, end: 20040305
  6. MAGNEVIST [Suspect]
     Dates: start: 20040519, end: 20040519
  7. MAGNEVIST [Suspect]
     Dates: start: 20040618, end: 20040618
  8. MAGNEVIST [Suspect]
     Dates: start: 20040705, end: 20040705
  9. MAGNEVIST [Suspect]
     Dates: start: 20050909, end: 20050909
  10. MAGNEVIST [Suspect]
     Dates: start: 20050930, end: 20050930
  11. MAGNEVIST [Suspect]
     Dates: start: 20051222, end: 20051222
  12. OMNISCAN [Suspect]
     Indication: NUCLEAR MAGNETIC RESONANCE IMAGING
  13. OPTIMARK [Suspect]
     Indication: NUCLEAR MAGNETIC RESONANCE IMAGING
  14. MULTIHANCE [Suspect]
     Indication: NUCLEAR MAGNETIC RESONANCE IMAGING
  15. PROHANCE [Suspect]
     Indication: NUCLEAR MAGNETIC RESONANCE IMAGING

REACTIONS (7)
  - ANXIETY [None]
  - EMOTIONAL DISTRESS [None]
  - FEAR [None]
  - FIBROSIS [None]
  - INJURY [None]
  - NEPHROGENIC SYSTEMIC FIBROSIS [None]
  - PAIN [None]
